FAERS Safety Report 6795180-7 (Version None)
Quarter: 2010Q2

REPORT INFORMATION
  Report Type: 
  Country: None (occurrence: None)
  Receive Date: 20100625
  Receipt Date: 20100616
  Transmission Date: 20101027
  Serious: Yes (Other)
  Sender: FDA-Public Use
  Company Number: IT-CELGENEUS-083-C5013-10061696

PATIENT
  Sex: Male
  Weight: 91.3 kg

DRUGS (6)
  1. THALIDOMIDE [Suspect]
     Indication: MULTIPLE MYELOMA
     Route: 048
     Dates: start: 20100519, end: 20100603
  2. THALIDOMIDE [Suspect]
     Route: 048
     Dates: start: 20100603, end: 20100606
  3. MELPHALAN HYDROCHLORIDE [Suspect]
     Indication: MULTIPLE MYELOMA
     Route: 065
     Dates: start: 20100519, end: 20100522
  4. PREDNISONE [Suspect]
     Indication: MULTIPLE MYELOMA
     Route: 065
     Dates: start: 20100519, end: 20100522
  5. LANSOPRAZOLE [Concomitant]
     Indication: PROPHYLAXIS
     Route: 048
  6. MODURETIC 5-50 [Concomitant]
     Indication: DIURETIC THERAPY
     Route: 048

REACTIONS (1)
  - PRESYNCOPE [None]
